FAERS Safety Report 14451425 (Version 1)
Quarter: 2018Q1

REPORT INFORMATION
  Report Type: Spontaneous
  Country: US (occurrence: US)
  Receive Date: 20180129
  Receipt Date: 20180129
  Transmission Date: 20180509
  Serious: No
  Sender: FDA-Public Use
  Company Number: US-ABBVIE-17K-163-2191484-00

PATIENT

DRUGS (3)
  1. METHOTREXATE. [Concomitant]
     Active Substance: METHOTREXATE
     Indication: PRODUCT USED FOR UNKNOWN INDICATION
  2. HUMIRA [Suspect]
     Active Substance: ADALIMUMAB
     Indication: COLITIS ULCERATIVE
     Route: 058
     Dates: start: 201710, end: 2017
  3. PREDNISONE. [Suspect]
     Active Substance: PREDNISONE
     Indication: COLITIS ULCERATIVE
     Route: 065

REACTIONS (9)
  - Haematochezia [Unknown]
  - Defaecation urgency [Unknown]
  - Frequent bowel movements [Unknown]
  - Pulmonary pain [Unknown]
  - Abdominal discomfort [Unknown]
  - Colitis ulcerative [Unknown]
  - Gastrointestinal inflammation [Unknown]
  - Drug ineffective [Unknown]
  - Faecal volume increased [Unknown]

NARRATIVE: CASE EVENT DATE: 2017
